FAERS Safety Report 15838458 (Version 1)
Quarter: 2019Q1

REPORT INFORMATION
  Report Type: Spontaneous
  Country: NL (occurrence: NL)
  Receive Date: 20190117
  Receipt Date: 20190117
  Transmission Date: 20190417
  Serious: Yes (Death, Hospitalization, Other)
  Sender: FDA-Public Use
  Company Number: PHHY2019NL003572

PATIENT
  Age: 65 Year
  Sex: Male

DRUGS (5)
  1. VALPROIC ACID. [Suspect]
     Active Substance: VALPROIC ACID
     Dosage: 300 MG, UNK
     Route: 048
  2. VALPROIC ACID. [Suspect]
     Active Substance: VALPROIC ACID
     Dosage: 600 MG, UNK
     Route: 048
  3. OLANZAPINE. [Concomitant]
     Active Substance: OLANZAPINE
     Indication: PRODUCT USED FOR UNKNOWN INDICATION
     Dosage: 10 MG, UNK
     Route: 065
  4. VALPROIC ACID. [Suspect]
     Active Substance: VALPROIC ACID
     Indication: BIPOLAR I DISORDER
     Dosage: 2500 MG, UNK
     Route: 048
  5. VALPROIC ACID. [Suspect]
     Active Substance: VALPROIC ACID
     Dosage: 1000 MG, UNK
     Route: 048

REACTIONS (12)
  - Lethargy [Unknown]
  - Major depression [Unknown]
  - Facial paralysis [Unknown]
  - Gait disturbance [Unknown]
  - Malaise [Unknown]
  - Delirium [Unknown]
  - Chills [Unknown]
  - Dysphagia [Unknown]
  - Toxicity to various agents [Fatal]
  - Asthenia [Unknown]
  - Urinary tract disorder [Unknown]
  - Cognitive disorder [Unknown]
